FAERS Safety Report 4645984-1 (Version None)
Quarter: 2005Q2

REPORT INFORMATION
  Report Type: 
  Country: None (occurrence: None)
  Receive Date: 20050427
  Receipt Date: 20050412
  Transmission Date: 20051028
  Serious: Yes (Death, Hospitalization)
  Sender: FDA-Public Use
  Company Number: US-AMGEN-US126696

PATIENT
  Age: 40 Year
  Sex: Male
  Weight: 95.3 kg

DRUGS (1)
  1. ENBREL [Suspect]
     Indication: DRUG USE FOR UNKNOWN INDICATION

REACTIONS (10)
  - ANAEMIA [None]
  - COLLAPSE OF LUNG [None]
  - DRUG TOXICITY [None]
  - INFECTION [None]
  - LOWER RESPIRATORY TRACT INFLAMMATION [None]
  - LUNG DISORDER [None]
  - PNEUMONIA [None]
  - PULMONARY TOXICITY [None]
  - RESPIRATORY FAILURE [None]
  - THROMBOSIS [None]
